FAERS Safety Report 4963855-8 (Version None)
Quarter: 2006Q1

REPORT INFORMATION
  Report Type: 
  Country: None (occurrence: None)
  Receive Date: 20060330
  Receipt Date: 20060313
  Transmission Date: 20060701
  Serious: Yes (Other)
  Sender: FDA-Public Use
  Company Number: GB200603003246

PATIENT
  Weight: 23.8 kg

DRUGS (3)
  1. STRATTERA [Suspect]
     Indication: ATTENTION DEFICIT/HYPERACTIVITY DISORDER
     Dosage: 40 MG, ORAL
     Route: 048
     Dates: start: 20041029, end: 20060214
  2. EQUASYM (METHYLPHENIDATE HYDROCHLORIDE) [Concomitant]
  3. CONCERTA [Concomitant]

REACTIONS (1)
  - CHEST PAIN [None]
